FAERS Safety Report 9178083 (Version 1)
Quarter: 2013Q1

REPORT INFORMATION
  Report Type: Spontaneous
  Country: GB (occurrence: GB)
  Receive Date: 20130321
  Receipt Date: 20130321
  Transmission Date: 20140127
  Serious: Yes (Hospitalization)
  Sender: FDA-Public Use
  Company Number: GB-PFIZER INC-08-AUR-01783

PATIENT
  Age: 47 Year
  Sex: Female

DRUGS (7)
  1. FLUOXETINE HCL [Suspect]
     Indication: DEPRESSION
     Dosage: 20 MG, 1X/DAY
     Route: 048
  2. HALOPERIDOL [Interacting]
     Indication: ANTIEMETIC SUPPORTIVE CARE
     Dosage: 2.5 MG, 1X/DAY
     Route: 058
  3. HALOPERIDOL [Interacting]
     Dosage: 1.5 MG, 1X/DAY
     Route: 048
  4. LEVOMEPROMAZINE [Interacting]
     Indication: ANTIEMETIC SUPPORTIVE CARE
     Dosage: 6 MG, 2X/DAY
     Route: 048
  5. LEVOMEPROMAZINE [Interacting]
     Indication: NAUSEA
  6. OXYCODONE [Concomitant]
     Dosage: 20 MG, 1X/DAY
     Route: 058
  7. OXYCODONE [Concomitant]
     Dosage: 15 MG, 2X/DAY
     Route: 048

REACTIONS (2)
  - Akathisia [Recovered/Resolved]
  - Drug interaction [Recovered/Resolved]
